FAERS Safety Report 17491432 (Version 4)
Quarter: 2021Q4

REPORT INFORMATION
  Report Type: Report from Study
  Country: KR (occurrence: None)
  Receive Date: 20200304
  Receipt Date: 20211215
  Transmission Date: 20220303
  Serious: Yes (Hospitalization)
  Sender: FDA-Public Use
  Company Number: KR-ROCHE-2558838

PATIENT
  Age: 69 Year
  Sex: Female
  Weight: 75.7 kg

DRUGS (46)
  1. ATEZOLIZUMAB [Suspect]
     Active Substance: ATEZOLIZUMAB
     Indication: Transitional cell carcinoma
     Dosage: DATE OF MOST RECENT DOSE OF ATEZOLIZUMAB PRIOR TO EVENT ONSET 23/JAN/2020
     Route: 041
     Dates: start: 20200123
  2. MAGROLIMAB [Suspect]
     Active Substance: MAGROLIMAB
     Indication: Transitional cell carcinoma
     Dosage: DATE OF MOST RECENT DOSE (2226 MG/KG) OF HU5F9-G4 PRIOR TO EVENT ONSET 30/JAN/2020
     Route: 042
     Dates: start: 20200123
  3. ALMATRI [Concomitant]
     Indication: Gastritis
     Route: 048
     Dates: start: 20200316
  4. OMEGA-3-ACID ETHYL ESTERS [Concomitant]
     Active Substance: OMEGA-3-ACID ETHYL ESTERS
     Indication: Hypercholesterolaemia
     Route: 048
     Dates: start: 2002, end: 20200206
  5. OMEGA-3-ACID ETHYL ESTERS [Concomitant]
     Active Substance: OMEGA-3-ACID ETHYL ESTERS
     Route: 048
     Dates: start: 20200214
  6. LINAGLIPTIN\METFORMIN HYDROCHLORIDE [Concomitant]
     Active Substance: LINAGLIPTIN\METFORMIN HYDROCHLORIDE
     Indication: Diabetes mellitus
     Route: 048
     Dates: start: 2007
  7. LINAGLIPTIN\METFORMIN HYDROCHLORIDE [Concomitant]
     Active Substance: LINAGLIPTIN\METFORMIN HYDROCHLORIDE
     Route: 048
     Dates: start: 20200214
  8. NEBIVOLOL [Concomitant]
     Active Substance: NEBIVOLOL
     Indication: Hypertension
     Route: 048
     Dates: start: 2002, end: 20200206
  9. BENIDIPINE HCL [Concomitant]
     Indication: Hypertension
     Route: 048
     Dates: start: 2002, end: 20200206
  10. INDAPAMIDE [Concomitant]
     Active Substance: INDAPAMIDE
     Indication: Hypertension
     Route: 048
     Dates: start: 2002, end: 20200206
  11. DEXIMA [Concomitant]
     Indication: Diabetes mellitus
     Route: 048
     Dates: start: 2007, end: 20200206
  12. DEXIMA [Concomitant]
     Route: 048
     Dates: start: 20200214
  13. FENOFIBRIC ACID [Concomitant]
     Active Substance: FENOFIBRIC ACID
     Indication: Hypercholesterolaemia
     Route: 048
     Dates: start: 2002, end: 20200206
  14. FENOFIBRIC ACID [Concomitant]
     Active Substance: FENOFIBRIC ACID
     Route: 048
     Dates: start: 20200214
  15. RYZODEG 70/30 [Concomitant]
     Active Substance: INSULIN ASPART\INSULIN DEGLUDEC
     Indication: Diabetes mellitus
     Dosage: 30 UNIT
     Route: 058
     Dates: start: 20200117
  16. INSULIN ASPART [Concomitant]
     Active Substance: INSULIN ASPART
     Indication: Diabetes mellitus
     Dosage: 48 UNIT
     Route: 058
     Dates: start: 201803, end: 20200116
  17. IRBESARTAN [Concomitant]
     Active Substance: IRBESARTAN
     Indication: Hypertension
     Route: 048
     Dates: start: 201804, end: 20200206
  18. ELIQUIS [Concomitant]
     Active Substance: APIXABAN
     Indication: Pulmonary embolism
     Route: 048
     Dates: start: 201811, end: 20200206
  19. ELIQUIS [Concomitant]
     Active Substance: APIXABAN
     Route: 048
     Dates: start: 20200214
  20. GLIATAMINE [Concomitant]
     Dosage: 1 CAPSULE
     Route: 048
     Dates: start: 202001, end: 20200206
  21. GLIATAMINE [Concomitant]
     Dosage: 1 CAPSULE
     Route: 048
     Dates: start: 20200214
  22. LASIX [Concomitant]
     Active Substance: FUROSEMIDE
     Indication: Nephropathy toxic
     Route: 042
     Dates: start: 20200114, end: 20200114
  23. TYLENOL [Concomitant]
     Active Substance: ACETAMINOPHEN
     Indication: Anaphylactic reaction
     Route: 048
     Dates: start: 20200123, end: 20200123
  24. TYLENOL [Concomitant]
     Active Substance: ACETAMINOPHEN
     Indication: Pyrexia
     Route: 048
     Dates: start: 20200130, end: 20200130
  25. TYLENOL [Concomitant]
     Active Substance: ACETAMINOPHEN
     Route: 048
     Dates: start: 20200131, end: 20200206
  26. PENIRAMIN [Concomitant]
     Indication: Anaphylactic reaction
     Route: 042
     Dates: start: 20200123, end: 20200123
  27. PENIRAMIN [Concomitant]
     Route: 042
     Dates: start: 20200130, end: 20200130
  28. TRIAXONE [Concomitant]
     Indication: Infection
     Route: 042
     Dates: start: 20200206, end: 20200212
  29. FLAGYL [Concomitant]
     Active Substance: METRONIDAZOLE\METRONIDAZOLE HYDROCHLORIDE
     Indication: Infection
     Route: 042
     Dates: start: 20200206, end: 20200212
  30. MORPHINE HYDROCHLORIDE [Concomitant]
     Active Substance: MORPHINE HYDROCHLORIDE
     Indication: Pyrexia
     Route: 042
     Dates: start: 20200206, end: 20200206
  31. PLASMA SOLUTION A [Concomitant]
     Indication: Hypotension
     Route: 042
     Dates: start: 20200206, end: 20200206
  32. PACETA [Concomitant]
     Indication: Pyrexia
     Route: 042
     Dates: start: 20200206, end: 20200209
  33. LOSARTAN POTASSIUM [Concomitant]
     Active Substance: LOSARTAN POTASSIUM
     Indication: Blood creatinine increased
     Route: 048
     Dates: start: 20200207, end: 20200212
  34. UNIPENAK [Concomitant]
     Indication: Pyrexia
     Route: 030
     Dates: start: 20200207, end: 20200211
  35. LASIX [Concomitant]
     Active Substance: FUROSEMIDE
     Indication: Oedema
     Route: 048
     Dates: start: 20200208
  36. CALCIUM CARBONATE\CHOLECALCIFEROL [Concomitant]
     Active Substance: CALCIUM CARBONATE\CHOLECALCIFEROL
     Indication: Hypocalcaemia
     Route: 048
     Dates: start: 20200208, end: 20200210
  37. SMECTA [Concomitant]
     Active Substance: MONTMORILLONITE
     Indication: Diarrhoea
     Route: 048
     Dates: start: 20200208
  38. ACETAMINOPHEN [Concomitant]
     Active Substance: ACETAMINOPHEN
     Indication: Pyrexia
     Route: 048
     Dates: start: 20200208, end: 20200208
  39. LACTOWEL [Concomitant]
     Indication: Diarrhoea
     Route: 048
     Dates: start: 20200209
  40. FLASINYL [Concomitant]
     Indication: Infection
     Route: 048
     Dates: start: 20200212
  41. CEFDITOREN PIVOXIL [Concomitant]
     Active Substance: CEFDITOREN PIVOXIL
     Indication: Infection
     Route: 048
     Dates: start: 20200212
  42. FEROBA YOU [Concomitant]
     Indication: Anaemia
     Route: 048
     Dates: start: 20200226, end: 20200229
  43. ACRENTINE [Concomitant]
     Indication: Upper respiratory tract infection
     Route: 048
     Dates: start: 20200316
  44. LEVOCETAN [Concomitant]
     Indication: Upper respiratory tract infection
     Route: 048
     Dates: start: 20200316
  45. SCHDAFEN [Concomitant]
     Indication: Upper respiratory tract infection
     Route: 048
     Dates: start: 20200316
  46. MUCODAIN [Concomitant]
     Indication: Upper respiratory tract infection
     Route: 048
     Dates: start: 20200316

REACTIONS (1)
  - Myalgia [Recovered/Resolved]

NARRATIVE: CASE EVENT DATE: 20200203
